FAERS Safety Report 19701080 (Version 1)
Quarter: 2021Q3

REPORT INFORMATION
  Report Type: Not Available
  Country: None (occurrence: None)
  Receive Date: 20210813
  Receipt Date: 20210813
  Transmission Date: 20211014
  Serious: No
  Sender: FDA-Public Use
  Company Number: US-AKORN-169840

PATIENT
  Age: 72 Year
  Sex: Female

DRUGS (1)
  1. KETOROLAC TROMETHAMINE SOLUTION [Suspect]
     Active Substance: KETOROLAC TROMETHAMINE

REACTIONS (1)
  - Eye irritation [Not Recovered/Not Resolved]
